FAERS Safety Report 7268572-X (Version None)
Quarter: 2011Q1

REPORT INFORMATION
  Report Type: 
  Country: None (occurrence: None)
  Receive Date: 20110201
  Receipt Date: 20110121
  Transmission Date: 20110831
  Serious: Yes (Other)
  Sender: FDA-Public Use
  Company Number: AU-VALEANT-2011VX000312

PATIENT
  Sex: Male

DRUGS (1)
  1. EFUDIX [Suspect]
     Route: 061
     Dates: start: 20101201, end: 20110101

REACTIONS (4)
  - HYPOAESTHESIA [None]
  - INCORRECT DOSE ADMINISTERED [None]
  - RENAL IMPAIRMENT [None]
  - BLOOD CREATININE INCREASED [None]
